FAERS Safety Report 4367889-6 (Version None)
Quarter: 2004Q2

REPORT INFORMATION
  Report Type: 
  Country: None (occurrence: None)
  Receive Date: 20040601
  Receipt Date: 20040601
  Transmission Date: 20050107
  Serious: Yes (Hospitalization)
  Sender: FDA-Public Use
  Company Number: None

PATIENT
  Age: 33 Year
  Sex: Male
  Weight: 70.6 kg

DRUGS (2)
  1. HALDOL [Suspect]
     Indication: SCHIZOPHRENIA
     Dosage: 20 MG DAILY IN P ORAL
     Route: 048
     Dates: start: 20040101, end: 20040524
  2. ZYPREXA [Concomitant]

REACTIONS (4)
  - AGITATION [None]
  - HYPONATRAEMIA [None]
  - NEUROLEPTIC MALIGNANT SYNDROME [None]
  - POLYDIPSIA [None]
